FAERS Safety Report 7021333-9 (Version None)
Quarter: 2010Q3

REPORT INFORMATION
  Report Type: 
  Country: None (occurrence: None)
  Receive Date: 20100929
  Receipt Date: 20100917
  Transmission Date: 20110219
  Serious: Yes (Other)
  Sender: FDA-Public Use
  Company Number: US-PFIZER INC-2010096181

PATIENT
  Sex: Female
  Weight: 68.03 kg

DRUGS (3)
  1. LYRICA [Suspect]
     Indication: NEUROPATHY PERIPHERAL
     Dosage: 25 MG, 2X/DAY
     Route: 048
     Dates: start: 20100601, end: 20100701
  2. ACETYLSALICYLIC ACID [Concomitant]
     Indication: NEUROPATHY PERIPHERAL
     Dosage: UNK
  3. ADVAIR DISKUS 100/50 [Concomitant]
     Dosage: UNK

REACTIONS (5)
  - DRY SKIN [None]
  - OEDEMA PERIPHERAL [None]
  - SCRATCH [None]
  - SKIN DISCOLOURATION [None]
  - SKIN LESION [None]
